FAERS Safety Report 6568243-9 (Version None)
Quarter: 2010Q1

REPORT INFORMATION
  Report Type: 
  Country: None (occurrence: None)
  Receive Date: 20100203
  Receipt Date: 20100125
  Transmission Date: 20100710
  Serious: Yes (Death, Hospitalization)
  Sender: FDA-Public Use
  Company Number: US-ELI_LILLY_AND_COMPANY-US200912005492

PATIENT
  Age: 67 Year
  Sex: Male

DRUGS (1)
  1. FORTEO [Suspect]
     Dosage: UNK, UNKNOWN
     Route: 065

REACTIONS (3)
  - BONE DISORDER [None]
  - DEATH [None]
  - LUNG DISORDER [None]
